FAERS Safety Report 4724920-3 (Version None)
Quarter: 2005Q3

REPORT INFORMATION
  Report Type: 
  Country: None (occurrence: None)
  Receive Date: 20050720
  Receipt Date: 20050720
  Transmission Date: 20060218
  Serious: Yes (Hospitalization)
  Sender: FDA-Public Use
  Company Number: None

PATIENT
  Age: 43 Year
  Sex: Female
  Weight: 88.4514 kg

DRUGS (3)
  1. LEVAQUIN [Suspect]
     Indication: BLADDER OPERATION
     Dosage: ONE PER DAY
     Dates: start: 20050427, end: 20050504
  2. LEVAQUIN [Suspect]
     Indication: PROPHYLAXIS
     Dosage: ONE PER DAY
     Dates: start: 20050427, end: 20050504
  3. LEVAQUIN [Suspect]
     Indication: UTERINE OPERATION
     Dosage: ONE PER DAY
     Dates: start: 20050427, end: 20050504

REACTIONS (7)
  - BLOOD PRESSURE DECREASED [None]
  - CHEST PAIN [None]
  - CONVULSION [None]
  - FOOD INTOLERANCE [None]
  - HEART RATE INCREASED [None]
  - LOSS OF CONSCIOUSNESS [None]
  - SENSATION OF HEAVINESS [None]
